FAERS Safety Report 10229155 (Version 2)
Quarter: 2014Q2

REPORT INFORMATION
  Report Type: Spontaneous
  Country: US (occurrence: US)
  Receive Date: 20140611
  Receipt Date: 20140627
  Transmission Date: 20141212
  Serious: Yes (Other)
  Sender: FDA-Public Use
  Company Number: US-009507513-1406USA004053

PATIENT
  Age: 27 Year
  Sex: Female

DRUGS (2)
  1. TEMODAR [Suspect]
     Indication: OLIGOASTROCYTOMA
     Dosage: FOUR 20 MG CAPSULES DAILY
     Route: 048
     Dates: start: 20121006
  2. TEMOZOLOMIDE [Concomitant]
     Dosage: UNK
     Dates: start: 2014

REACTIONS (1)
  - Oligoastrocytoma [Unknown]
